FAERS Safety Report 7185846-1 (Version None)
Quarter: 2010Q4

REPORT INFORMATION
  Report Type: 
  Country: None (occurrence: None)
  Receive Date: 20101222
  Receipt Date: 20100610
  Transmission Date: 20110411
  Serious: Yes (Other)
  Sender: FDA-Public Use
  Company Number: US-AMGEN-QUU413982

PATIENT

DRUGS (8)
  1. ENBREL [Suspect]
     Indication: RHEUMATOID ARTHRITIS
     Dosage: 50 MG, QWK
     Route: 058
     Dates: start: 20100405, end: 20100524
  2. METHOTREXATE [Concomitant]
     Dosage: UNK UNK, UNK
     Dates: start: 20060101
  3. DESVENLAFAXINE [Concomitant]
     Dosage: UNK UNK, UNK
     Dates: start: 20080101
  4. ACETYLSALICYLIC ACID [Concomitant]
  5. FOLIC ACID [Concomitant]
     Dosage: UNK UNK, UNK
     Dates: start: 20060101
  6. LISINOPRIL [Concomitant]
  7. CALCIUM [Concomitant]
  8. ESTROGENS CONJUGATED [Concomitant]

REACTIONS (3)
  - INCORRECT STORAGE OF DRUG [None]
  - INJECTION SITE ERYTHEMA [None]
  - INJECTION SITE REACTION [None]
